FAERS Safety Report 22349521 (Version 1)
Quarter: 2023Q2

REPORT INFORMATION
  Report Type: Spontaneous
  Country: NL (occurrence: NL)
  Receive Date: 20230522
  Receipt Date: 20230522
  Transmission Date: 20230722
  Serious: Yes (Life-Threatening, Hospitalization, Disabling, Other)
  Sender: FDA-Public Use
  Company Number: None

PATIENT
  Sex: Female
  Weight: 79 kg

DRUGS (58)
  1. ACETAMINOPHEN [Suspect]
     Active Substance: ACETAMINOPHEN
     Indication: Pain
     Dosage: UNK
     Route: 065
     Dates: start: 20221115, end: 20221129
  2. ENOXIMONA [Concomitant]
     Dosage: ONBEKEND
  3. MILRINONA [MILRINONE] [Concomitant]
     Dosage: ONBEKEND
  4. TEMAZEPAM [Concomitant]
     Active Substance: TEMAZEPAM
     Dosage: ONBEKEND
  5. CALCIUM CHLORIDE\MAGNESIUM CHLORIDE\POTASSIUM CHLORIDE\SODIUM BICARBON [Concomitant]
     Active Substance: CALCIUM CHLORIDE\MAGNESIUM CHLORIDE\POTASSIUM CHLORIDE\SODIUM BICARBONATE\SODIUM CHLORIDE\SODIUM PHO
     Dosage: ONBEKEND
  6. MORFINE HCL [Concomitant]
     Dosage: ONBEKEND
  7. CEFUROXIME [Suspect]
     Active Substance: CEFUROXIME
     Indication: Product used for unknown indication
     Dosage: ONBEKEND
  8. DEXMEDETOMIDINE [Concomitant]
     Active Substance: DEXMEDETOMIDINE
     Dosage: ONBEKEND
  9. TRANEXAMINEZUUR [Concomitant]
     Dosage: ONBEKEND
  10. METHYLNALTREXONE [Concomitant]
     Active Substance: METHYLNALTREXONE
     Dosage: ONBEKEND
  11. MAGNESIUMSULFAAT [Concomitant]
     Dosage: ONBEKEND
  12. CALCIUM\MAGNESIUM [Concomitant]
     Active Substance: CALCIUM\MAGNESIUM
     Dosage: ONBEKEND
  13. PANTOPRAZOLE [Suspect]
     Active Substance: PANTOPRAZOLE
     Indication: Product used for unknown indication
     Dosage: 1DD 40MG I.V.
     Route: 040
     Dates: start: 20221117, end: 20221212
  14. VANCOMYCIN [Suspect]
     Active Substance: VANCOMYCIN
     Indication: Infection
     Dosage: TOT 1700MG/DAG I.V. EENMALIG.
     Dates: start: 20221204, end: 20221204
  15. VANCOMYCIN [Suspect]
     Active Substance: VANCOMYCIN
     Dosage: TOT 1700MG/DAG I.V. EENMALIG.
     Route: 040
     Dates: start: 20221121, end: 20221122
  16. CLINDAMYCIN [Suspect]
     Active Substance: CLINDAMYCIN
     Indication: Product used for unknown indication
     Dosage: ONBEKEND.
  17. CARBAMAZEPINE [Concomitant]
     Active Substance: CARBAMAZEPINE
     Dosage: ONBEKEND
  18. PREDNISONE [Concomitant]
     Active Substance: PREDNISONE
     Dosage: ONBEKEND
  19. IOMEPROL [Concomitant]
     Active Substance: IOMEPROL
     Dosage: ONBEKEND
  20. POTASSIUM CHLORIDE [Concomitant]
     Active Substance: POTASSIUM CHLORIDE
     Dosage: ONBEKEND
  21. CIPROFLOXACIN [Suspect]
     Active Substance: CIPROFLOXACIN
     Indication: Infection
     Dosage: TOT 3DD 600MG I.V.
     Dates: start: 20221115, end: 20221116
  22. METAMIZOLE [Suspect]
     Active Substance: METAMIZOLE
     Indication: Pain
     Dosage: ONBEKEND.
  23. ADRENALIN [Concomitant]
     Active Substance: EPINEPHRINE
     Dosage: ONBEKEND
  24. ATROPINE [Concomitant]
     Active Substance: ATROPINE
     Dosage: ONBEKEND
  25. PIRITRAMIDE [Concomitant]
     Active Substance: PIRITRAMIDE
     Dosage: ONBEKEND
  26. ARGIPRESSINE [Concomitant]
     Dosage: ONBEKEND
  27. OXAZEPAM [Concomitant]
     Active Substance: OXAZEPAM
     Dosage: ONBEKEND
  28. AMBISOME [Suspect]
     Active Substance: AMPHOTERICIN B
     Indication: Infection
     Dosage: 2X PER WEEK 25MG.
     Dates: start: 20221207, end: 20221213
  29. DALTEPARIN SODIUM [Concomitant]
     Active Substance: DALTEPARIN SODIUM
     Dosage: ONBEKEND
  30. METRONIDAZOLE [Suspect]
     Active Substance: METRONIDAZOLE
     Indication: Product used for unknown indication
     Dosage: ONBEKEND. START- EN STOPDATUM OOK ONBEKEND.
  31. POLYETHYLENE GLYCOL 3350\POTASSIUM CHLORIDE\SODIUM BICARBONATE\SODIUM [Concomitant]
     Active Substance: POLYETHYLENE GLYCOL 3350\POTASSIUM CHLORIDE\SODIUM BICARBONATE\SODIUM CHLORIDE
     Dosage: ONBEKEND
  32. LORAZEPAM [Concomitant]
     Active Substance: LORAZEPAM
     Dosage: ONBEKEND
  33. HYDROCORTISONE [Concomitant]
     Active Substance: HYDROCORTISONE
     Dosage: ONBEKEND
  34. ALBUMIN HUMAN [Concomitant]
     Active Substance: ALBUMIN HUMAN
     Dosage: ONBEKEND
  35. FUROSEMIDE [Concomitant]
     Active Substance: FUROSEMIDE
     Dosage: ONBEKEND
  36. ACYCLOVIR [Suspect]
     Active Substance: ACYCLOVIR
     Indication: Product used for unknown indication
     Dosage: TOT 3DD 10MG/KG
     Dates: start: 20221121, end: 20221123
  37. MIDAZOLAM [Concomitant]
     Active Substance: MIDAZOLAM
     Dosage: ONBEKEND
  38. ALBUTEROL SULFATE\IPRATROPIUM BROMIDE [Concomitant]
     Active Substance: ALBUTEROL SULFATE\IPRATROPIUM BROMIDE
     Dosage: ONBEKEND
  39. REGIOCIT [Concomitant]
     Active Substance: SODIUM CHLORIDE\SODIUM CITRATE
     Dosage: ONBEKEND
  40. SUFENTANIL [Concomitant]
     Active Substance: SUFENTANIL
     Dosage: ONBEKEND
  41. CEFOTAXIME [Suspect]
     Active Substance: CEFOTAXIME SODIUM
     Indication: Infection
     Dosage: TOT 6000MG/DAG I.V. CONTINU.
     Dates: start: 20221115, end: 20221122
  42. PROPOFOL [Concomitant]
     Active Substance: PROPOFOL
     Dosage: ONBEKEND
  43. ROCURONIUM [Concomitant]
     Active Substance: ROCURONIUM BROMIDE
     Dosage: ONBEKEND
  44. AZITHROMYCIN [Suspect]
     Active Substance: AZITHROMYCIN
     Indication: Infection
     Dosage: 1X PER DAG 1 STUK.
     Dates: start: 20221210, end: 20221212
  45. MOXIFLOXACIN [Suspect]
     Active Substance: MOXIFLOXACIN
     Indication: Infection
     Dosage: 400MG/DAG I.V.
     Route: 040
     Dates: start: 20221116, end: 20221118
  46. NADROPARIN CALCIUM [Concomitant]
     Active Substance: NADROPARIN CALCIUM
     Dosage: ONBEKEND
  47. HEPARIN [Concomitant]
     Active Substance: HEPARIN SODIUM
     Dosage: ONBEKEND
  48. AMINO ACIDS\CARBOHYDRATES\MINERALS\SOYBEAN OIL\VITAMINS [Concomitant]
     Active Substance: AMINO ACIDS\CARBOHYDRATES\MINERALS\SOYBEAN OIL\VITAMINS
     Dosage: NUTRISON PROTEIN PLUS. ONBEKENDE DOSERING.
  49. NOREPINEPHRINE [Concomitant]
     Active Substance: NOREPINEPHRINE
     Dosage: ONBEKEND
  50. HALOPERIDOL [Concomitant]
     Active Substance: HALOPERIDOL
     Dosage: ONBEKEND
  51. CALCIUM CARBONATE\CHOLECALCIFEROL [Concomitant]
     Active Substance: CALCIUM CARBONATE\CHOLECALCIFEROL
     Dosage: ONBEKEND
  52. PIPERACILLIN SODIUM\TAZOBACTAM SODIUM [Suspect]
     Active Substance: PIPERACILLIN SODIUM\TAZOBACTAM SODIUM
     Indication: Infection
     Dosage: 1X DAAGS, IN WISSELENDE DOSERINGEN.
     Dates: start: 20221122, end: 20221213
  53. MAGNESIUM CHLORIDE\POTASSIUM CHLORIDE\SODIUM BICARBONATE\SODIUM CHLORI [Concomitant]
     Active Substance: MAGNESIUM CHLORIDE\POTASSIUM CHLORIDE\SODIUM BICARBONATE\SODIUM CHLORIDE\SODIUM PHOSPHATE, DIBASIC
     Dosage: ONBEKEND
  54. ALENDRONIC ACID [Concomitant]
     Active Substance: ALENDRONIC ACID
     Dosage: ONBEKEND
  55. QUETIAPINE [Concomitant]
     Active Substance: QUETIAPINE
     Dosage: ONBEKEND
  56. CEFTRIAXONE [Suspect]
     Active Substance: CEFTRIAXONE
     Indication: Infection
     Dosage: ONBEKEND.
  57. FENTANYL [Concomitant]
     Active Substance: FENTANYL
     Dosage: ONBEKEND
  58. DOBUTAMINE [Concomitant]
     Active Substance: DOBUTAMINE HYDROCHLORIDE
     Dosage: ONBEKEND

REACTIONS (1)
  - Toxic epidermal necrolysis [Recovering/Resolving]
